FAERS Safety Report 10924102 (Version 1)
Quarter: 2015Q1

REPORT INFORMATION
  Report Type: Spontaneous
  Country: US (occurrence: None)
  Receive Date: 20150129
  Receipt Date: 20150129
  Transmission Date: 20150721
  Serious: Yes (Other)
  Sender: FDA-Public Use
  Company Number: 2014005085

PATIENT

DRUGS (2)
  1. KEPPRA [Suspect]
     Active Substance: LEVETIRACETAM
  2. EPILIM [Suspect]
     Active Substance: VALPROATE SODIUM

REACTIONS (2)
  - Weight increased [None]
  - Suicide attempt [None]
